FAERS Safety Report 19416211 (Version 1)
Quarter: 2021Q2

REPORT INFORMATION
  Report Type: Spontaneous
  Country: US (occurrence: US)
  Receive Date: 20210615
  Receipt Date: 20210615
  Transmission Date: 20210717
  Serious: No
  Sender: FDA-Public Use
  Company Number: US-ALLERGAN-2110184US

PATIENT
  Sex: Female

DRUGS (7)
  1. COOLSCULPTING [Concomitant]
  2. VITAMIN D [Concomitant]
     Active Substance: VITAMIN D NOS
  3. ALEVE [Concomitant]
     Active Substance: NAPROXEN SODIUM
  4. TYLENOL [Concomitant]
     Active Substance: ACETAMINOPHEN
  5. VITAMIN C [Concomitant]
     Active Substance: ASCORBIC ACID
  6. KYBELLA [Suspect]
     Active Substance: DEOXYCHOLIC ACID
     Indication: HYPERPLASIA
     Dosage: 5.1 ML, SINGLE
     Dates: start: 20201030, end: 20201030
  7. KYBELLA [Suspect]
     Active Substance: DEOXYCHOLIC ACID
     Dosage: 5 ML, SINGLE
     Dates: start: 20200911, end: 20200911

REACTIONS (2)
  - Off label use [Unknown]
  - Drug ineffective [Unknown]
